FAERS Safety Report 7288590-5 (Version None)
Quarter: 2011Q1

REPORT INFORMATION
  Report Type: 
  Country: None (occurrence: None)
  Receive Date: 20110207
  Receipt Date: 20110207
  Transmission Date: 20110831
  Serious: Yes (Life-Threatening, Hospitalization)
  Sender: FDA-Public Use
  Company Number: None

PATIENT
  Sex: Female
  Weight: 50 kg

DRUGS (1)
  1. LIDOCAINE [Suspect]
     Dosage: 20CC OF 0.5% LIDOCAINE IV
     Route: 042
     Dates: start: 20100526, end: 20100526

REACTIONS (1)
  - HYPOTENSION [None]
